FAERS Safety Report 17400292 (Version 1)
Quarter: 2020Q1

REPORT INFORMATION
  Report Type: Spontaneous
  Country: BA (occurrence: BA)
  Receive Date: 20200211
  Receipt Date: 20200211
  Transmission Date: 20200409
  Serious: Yes (Other)
  Sender: FDA-Public Use
  Company Number: BA-TEVA-2020-BA-1182859

PATIENT
  Age: 56 Year
  Sex: Male
  Weight: 75 kg

DRUGS (1)
  1. PLIVATINIB [Suspect]
     Active Substance: IMATINIB MESYLATE
     Indication: CHRONIC MYELOID LEUKAEMIA
     Dosage: 400 MILLIGRAM DAILY;
     Route: 048
     Dates: start: 20190705, end: 20200104

REACTIONS (3)
  - Tongue oedema [Recovered/Resolved]
  - Angioedema [Recovered/Resolved]
  - Dermatitis allergic [Recovered/Resolved]

NARRATIVE: CASE EVENT DATE: 20200104
